FAERS Safety Report 7265907-9 (Version None)
Quarter: 2011Q1

REPORT INFORMATION
  Report Type: 
  Country: None (occurrence: None)
  Receive Date: 20110131
  Receipt Date: 20110124
  Transmission Date: 20110831
  Serious: Yes (Life-Threatening, Hospitalization, Disabling)
  Sender: FDA-Public Use
  Company Number: B0696201A

PATIENT
  Sex: Male
  Weight: 10.4 kg

DRUGS (43)
  1. TESPAMIN [Suspect]
     Indication: STEM CELL TRANSPLANT
     Dosage: 98MG PER DAY
     Dates: start: 20090716, end: 20090717
  2. NEUTROGIN [Concomitant]
     Dates: start: 20090722, end: 20090802
  3. TAMIFLU [Concomitant]
     Dosage: 21MG PER DAY
     Route: 048
     Dates: start: 20090715, end: 20090717
  4. BIOFERMIN R [Concomitant]
     Dosage: 1G PER DAY
     Route: 048
     Dates: start: 20090904
  5. SOLU-CORTEF [Concomitant]
     Dosage: 50MG PER DAY
     Dates: start: 20090721, end: 20090721
  6. DOPAMINE [Concomitant]
     Dosage: 50MG PER DAY
     Route: 042
     Dates: start: 20090824, end: 20090831
  7. SEPAMIT [Concomitant]
     Dosage: 6MG PER DAY
     Route: 048
     Dates: start: 20090817, end: 20090819
  8. DICHLOTRIDE [Concomitant]
     Dosage: 10MG PER DAY
     Route: 048
     Dates: start: 20090824
  9. GASTER [Concomitant]
     Dosage: 10MG PER DAY
     Route: 048
     Dates: start: 20090921, end: 20091004
  10. POTASSIUM CHLORIDE [Concomitant]
     Dosage: 5ML PER DAY
     Route: 042
     Dates: start: 20090729, end: 20090926
  11. TAIPERACILIN [Concomitant]
     Dosage: 1.2G PER DAY
     Route: 042
     Dates: start: 20090813, end: 20090816
  12. MILRINONE [Concomitant]
     Dosage: 10MG PER DAY
     Dates: start: 20090823, end: 20090915
  13. SEPAMIT [Concomitant]
     Dosage: 6MG PER DAY
     Route: 048
     Dates: start: 20090924, end: 20090929
  14. ANTHROBIN P [Concomitant]
     Dosage: 500IU PER DAY
     Route: 042
     Dates: start: 20090818, end: 20090923
  15. MEROPENEM [Concomitant]
     Dosage: 1050MG PER DAY
     Route: 042
     Dates: start: 20090719, end: 20090802
  16. AMBISOME [Concomitant]
     Dosage: 50MG PER DAY
     Route: 042
     Dates: start: 20090803, end: 20090928
  17. DOBUTAMINE HCL [Concomitant]
     Dosage: 50MG PER DAY
     Route: 042
     Dates: start: 20090818, end: 20090901
  18. VANCOMYCIN [Suspect]
     Dosage: 450MG PER DAY
     Route: 042
     Dates: start: 20090722, end: 20090804
  19. ACYCRIL [Concomitant]
     Dosage: 150MG PER DAY
     Route: 042
     Dates: start: 20090716, end: 20090827
  20. MAXIPIME [Concomitant]
     Dosage: 1050MG PER DAY
     Route: 042
     Dates: start: 20090716, end: 20090721
  21. CALCICOL [Concomitant]
     Dosage: 5ML PER DAY
     Route: 042
     Dates: start: 20090725, end: 20090904
  22. IMMUNE GLOBULIN INTRAVENOUS (HUMAN) [Concomitant]
     Dosage: 2.5G PER DAY
     Route: 042
     Dates: start: 20090823, end: 20090827
  23. FENTANYL [Concomitant]
     Dosage: .2MG PER DAY
     Route: 042
     Dates: start: 20090721, end: 20090929
  24. FAMOTIDINE [Concomitant]
     Dosage: 5MG PER DAY
     Route: 042
     Dates: start: 20090731, end: 20090911
  25. SODIUM CHLORIDE [Concomitant]
     Dosage: 36ML PER DAY
     Dates: start: 20090804, end: 20090904
  26. TAMIFLU [Concomitant]
     Dosage: 44MG PER DAY
     Route: 048
     Dates: start: 20090822, end: 20090826
  27. ACETAMINOPHEN [Concomitant]
     Dosage: .5G PER DAY
     Route: 048
     Dates: start: 20090722, end: 20090731
  28. CAPTOPRIL [Concomitant]
     Dosage: 9MG PER DAY
     Route: 048
     Dates: start: 20090903
  29. IMMUNE GLOBULIN INTRAVENOUS (HUMAN) [Concomitant]
     Dosage: 2.5G PER DAY
     Route: 042
     Dates: start: 20090721, end: 20090721
  30. ALBUMIN (HUMAN) [Concomitant]
     Dosage: 50ML PER DAY
     Route: 042
     Dates: start: 20090804, end: 20090804
  31. NAFASTON [Concomitant]
     Dosage: 30MG PER DAY
     Route: 042
     Dates: start: 20090820, end: 20090901
  32. ALKERAN [Suspect]
     Indication: STEM CELL TRANSPLANT
     Dosage: 34MG PER DAY
     Route: 042
     Dates: start: 20090716, end: 20090717
  33. URSO 250 [Concomitant]
     Dosage: 180MG PER DAY
     Route: 048
     Dates: start: 20090823, end: 20091001
  34. ITRIZOLE [Concomitant]
     Dosage: 5ML PER DAY
     Route: 048
     Dates: start: 20090824
  35. SUCRALFATE [Concomitant]
     Dosage: .9G PER DAY
     Route: 048
     Dates: start: 20090911
  36. FUNGUARD [Concomitant]
     Dosage: 50MG PER DAY
     Route: 042
     Dates: start: 20090716, end: 20090727
  37. VFEND [Concomitant]
     Dosage: 60MG PER DAY
     Route: 042
     Dates: start: 20090725, end: 20090729
  38. ZOSYN [Concomitant]
     Dosage: 3.375G PER DAY
     Dates: start: 20090901, end: 20090903
  39. ADALAT [Concomitant]
     Dosage: 5MG PER DAY
     Route: 048
     Dates: start: 20090817, end: 20090819
  40. TAKEPRON [Concomitant]
     Dosage: 7.5MG PER DAY
     Route: 048
     Dates: start: 20091006
  41. ANTHROBIN P [Concomitant]
     Dosage: 500IU PER DAY
     Route: 042
     Dates: start: 20090719, end: 20090810
  42. CEFOTAX [Concomitant]
     Dosage: 900MG PER DAY
     Dates: start: 20090816, end: 20090915
  43. LINTACIN [Concomitant]
     Dosage: 140MG PER DAY
     Dates: start: 20090822, end: 20090828

REACTIONS (1)
  - RESPIRATORY DISTRESS [None]
